FAERS Safety Report 5885763-0 (Version None)
Quarter: 2008Q3

REPORT INFORMATION
  Report Type: 
  Country: None (occurrence: None)
  Receive Date: 20080916
  Receipt Date: 20080908
  Transmission Date: 20090109
  Serious: Yes (Other)
  Sender: FDA-Public Use
  Company Number: BR-ELI_LILLY_AND_COMPANY-BR200809001856

PATIENT
  Sex: Male

DRUGS (4)
  1. BYETTA [Suspect]
     Indication: TYPE 2 DIABETES MELLITUS
     Dosage: 5 UG, UNKNOWN
     Route: 058
  2. BYETTA [Suspect]
     Dosage: 10 UG, UNKNOWN
     Route: 058
  3. GLIFAGE [Concomitant]
     Indication: DIABETES MELLITUS
     Dosage: 500 MG, DAILY (1/D)
     Route: 065
  4. ZYLORIC [Concomitant]
     Indication: BLOOD URIC ACID
     Dosage: UNK, DAILY (1/D)
     Route: 065

REACTIONS (2)
  - ABDOMINAL PAIN [None]
  - HAEMATEMESIS [None]
